FAERS Safety Report 8489754-5 (Version None)
Quarter: 2012Q3

REPORT INFORMATION
  Report Type: 
  Country: None (occurrence: None)
  Receive Date: 20120705
  Receipt Date: 20120627
  Transmission Date: 20120928
  Serious: Yes (Other)
  Sender: FDA-Public Use
  Company Number: DE-GLAXOSMITHKLINE-D0076141A

PATIENT
  Age: 16 Year
  Sex: Male

DRUGS (1)
  1. MALARONE [Suspect]
     Route: 048
     Dates: start: 20120618

REACTIONS (1)
  - DEPRESSION [None]
